FAERS Safety Report 13773234 (Version 4)
Quarter: 2019Q4

REPORT INFORMATION
  Report Type: Spontaneous
  Country: AR (occurrence: AR)
  Receive Date: 20170720
  Receipt Date: 20191211
  Transmission Date: 20200122
  Serious: Yes (Hospitalization, Other)
  Sender: FDA-Public Use
  Company Number: AR-PFIZER INC-2017315318

PATIENT
  Age: 71 Year
  Sex: Female

DRUGS (2)
  1. XELJANZ [Suspect]
     Active Substance: TOFACITINIB CITRATE
     Indication: RHEUMATOID ARTHRITIS
     Dosage: 5 MG, 2X/DAY
     Dates: start: 20150627
  2. METHOTREXATE. [Suspect]
     Active Substance: METHOTREXATE
     Dosage: UNK

REACTIONS (15)
  - Pneumonia [Recovered/Resolved]
  - Lung disorder [Not Recovered/Not Resolved]
  - Feeling abnormal [Recovered/Resolved]
  - Crying [Recovered/Resolved]
  - Pyrexia [Recovering/Resolving]
  - Thermal burn [Recovered/Resolved]
  - Somnolence [Recovered/Resolved]
  - Influenza [Unknown]
  - Amnesia [Unknown]
  - Decreased immune responsiveness [Unknown]
  - Malaise [Unknown]
  - Triple A syndrome [Recovered/Resolved]
  - Asthma [Not Recovered/Not Resolved]
  - Cough [Recovered/Resolved]
  - Finger deformity [Not Recovered/Not Resolved]

NARRATIVE: CASE EVENT DATE: 2017
